FAERS Safety Report 25491144 (Version 1)
Quarter: 2025Q2

REPORT INFORMATION
  Report Type: Spontaneous
  Country: GB (occurrence: GB)
  Receive Date: 20250629
  Receipt Date: 20250629
  Transmission Date: 20250717
  Serious: Yes (Hospitalization, Other)
  Sender: AUROBINDO
  Company Number: GB-MHRA-MED-202506161546116680-MGCBL

PATIENT
  Sex: Female

DRUGS (1)
  1. NORTRIPTYLINE [Suspect]
     Active Substance: NORTRIPTYLINE
     Indication: Fibromyalgia
     Route: 065
     Dates: start: 20240824, end: 20250616

REACTIONS (1)
  - Confusional state [Recovered/Resolved]
